FAERS Safety Report 9224183 (Version 1)
Quarter: 2013Q2

REPORT INFORMATION
  Report Type: Spontaneous
  Country: US (occurrence: US)
  Receive Date: 20130411
  Receipt Date: 20130411
  Transmission Date: 20140414
  Serious: No
  Sender: FDA-Public Use
  Company Number: US-PFIZER INC-2013111955

PATIENT
  Age: 64 Year
  Sex: Female
  Weight: 56.69 kg

DRUGS (3)
  1. GEODON [Suspect]
     Indication: PARANOIA
     Dosage: 20 MG, 1X/DAY
     Route: 048
     Dates: start: 20081204
  2. GEODON [Suspect]
     Indication: PSYCHOTIC DISORDER
  3. KLONOPIN [Concomitant]
     Dosage: 1 MG, 1X/DAY

REACTIONS (1)
  - Dermatitis contact [Not Recovered/Not Resolved]
